FAERS Safety Report 8779851 (Version 1)
Quarter: 2012Q4

REPORT INFORMATION
  Report Type: Spontaneous
  Country: None (occurrence: None)
  Receive Date: 20120828
  Receipt Date: 20120828
  Transmission Date: 20130627
  Serious: Yes (Other)
  Sender: FDA-Public Use
  Company Number: 2012MA010135

PATIENT
  Age: 57 Year
  Sex: Female

DRUGS (2)
  1. CARBAMAZEPINE [Suspect]
  2. PHENYTOIN [Suspect]

REACTIONS (5)
  - Pemphigus [None]
  - Antinuclear antibody positive [None]
  - Double stranded DNA antibody positive [None]
  - Acantholysis [None]
  - Antibody test positive [None]
